FAERS Safety Report 7674535-2 (Version None)
Quarter: 2011Q3

REPORT INFORMATION
  Report Type: 
  Country: None (occurrence: None)
  Receive Date: 20110810
  Receipt Date: 20110729
  Transmission Date: 20111222
  Serious: Yes (Hospitalization, Other)
  Sender: FDA-Public Use
  Company Number: PHHY2011FR45892

PATIENT
  Sex: Female
  Weight: 58 kg

DRUGS (5)
  1. BISOPROLOL FUMARATE [Concomitant]
     Dosage: UNK UKN, UNK, 1.25 (UNKNOWN UNITS)
  2. LEVOTHYROXINE SODIUM [Concomitant]
     Dosage: UNK UKN, UNK
  3. RASILEZ [Suspect]
     Indication: CARDIAC FAILURE
     Dosage: 150 MG, QD
     Route: 048
     Dates: start: 20110312, end: 20110315
  4. CALCIPARINE [Concomitant]
     Dosage: UNK UKN, UNK
  5. DIGOXIN [Concomitant]

REACTIONS (4)
  - BLOOD CREATININE INCREASED [None]
  - BLOOD PRESSURE DECREASED [None]
  - RENAL FAILURE [None]
  - OLIGURIA [None]
